FAERS Safety Report 8353753-4 (Version None)
Quarter: 2012Q2

REPORT INFORMATION
  Report Type: 
  Country: None (occurrence: None)
  Receive Date: 20120511
  Receipt Date: 20111021
  Transmission Date: 20120825
  Serious: No
  Sender: FDA-Public Use
  Company Number: US-GLAXOSMITHKLINE-A0950320A

PATIENT
  Sex: Female

DRUGS (1)
  1. TYKERB [Suspect]
     Indication: BREAST CANCER
     Dosage: 250MG PER DAY
     Route: 065
     Dates: start: 20111020

REACTIONS (4)
  - PRURITUS GENERALISED [None]
  - NAUSEA [None]
  - FATIGUE [None]
  - DIARRHOEA [None]
